FAERS Safety Report 17365619 (Version 1)
Quarter: 2020Q1

REPORT INFORMATION
  Report Type: Spontaneous
  Country: US (occurrence: US)
  Receive Date: 20200204
  Receipt Date: 20200204
  Transmission Date: 20200409
  Serious: Yes (Other)
  Sender: FDA-Public Use
  Company Number: US-BAYER-2020-014600

PATIENT
  Age: 64 Year
  Sex: Male

DRUGS (1)
  1. ASPIRIN (CARDIO) [Suspect]
     Active Substance: ASPIRIN
     Indication: CHEST PAIN

REACTIONS (3)
  - Gastric ulcer [None]
  - Faeces discoloured [None]
  - Anaemia [None]
